FAERS Safety Report 5483718-1 (Version None)
Quarter: 2007Q4

REPORT INFORMATION
  Report Type: 
  Country: None (occurrence: None)
  Receive Date: 20071012
  Receipt Date: 20070927
  Transmission Date: 20080405
  Serious: Yes (Hospitalization)
  Sender: FDA-Public Use
  Company Number: AU-GENENTECH-249000

PATIENT
  Sex: Female
  Weight: 55.2 kg

DRUGS (2)
  1. BEVACIZUMAB [Suspect]
     Indication: BREAST CANCER METASTATIC
     Dosage: 7.5 MG/KG, Q3W
     Route: 042
     Dates: start: 20061020, end: 20070918
  2. DOCETAXEL [Suspect]
     Indication: BREAST CANCER METASTATIC
     Dosage: 100 MG/M2, Q3W
     Route: 042
     Dates: start: 20061020

REACTIONS (1)
  - GASTRIC ULCER [None]
